FAERS Safety Report 18398606 (Version 1)
Quarter: 2020Q4

REPORT INFORMATION
  Report Type: Spontaneous
  Country: US (occurrence: US)
  Receive Date: 20201019
  Receipt Date: 20201019
  Transmission Date: 20210114
  Serious: Yes (Other)
  Sender: FDA-Public Use
  Company Number: None

PATIENT
  Age: 61 Year
  Sex: Female
  Weight: 62.1 kg

DRUGS (4)
  1. ORIMIDONES TOOL SOFTENER [Concomitant]
  2. DILANTIN [Concomitant]
     Active Substance: PHENYTOIN
  3. METAMUCIL A [Concomitant]
  4. AIMOVIG [Suspect]
     Active Substance: ERENUMAB-AOOE
     Indication: MIGRAINE
     Dosage: ?          QUANTITY:1 INJECTION(S);
     Dates: start: 20200728, end: 20200901

REACTIONS (2)
  - Constipation [None]
  - Palpitations [None]

NARRATIVE: CASE EVENT DATE: 20201001
